FAERS Safety Report 15592944 (Version 1)
Quarter: 2018Q4

REPORT INFORMATION
  Report Type: Spontaneous
  Country: US (occurrence: US)
  Receive Date: 20181107
  Receipt Date: 20181107
  Transmission Date: 20190205
  Serious: Yes (Disabling, Other)
  Sender: FDA-Public Use
  Company Number: None

PATIENT
  Age: 51 Year
  Sex: Male
  Weight: 76.5 kg

DRUGS (1)
  1. LEVOFLOXACIN. [Suspect]
     Active Substance: LEVOFLOXACIN
     Indication: INFECTION
     Dosage: ?          QUANTITY:1 CAPSULE(S);?
     Route: 048
     Dates: start: 20181019, end: 20181023

REACTIONS (16)
  - Bradyphrenia [None]
  - Musculoskeletal stiffness [None]
  - Dehydration [None]
  - Paraesthesia [None]
  - Back pain [None]
  - Muscle spasms [None]
  - Pain in extremity [None]
  - Blood creatine increased [None]
  - Abdominal pain [None]
  - Eye pain [None]
  - Chills [None]
  - Headache [None]
  - Asthenia [None]
  - Joint noise [None]
  - Fatigue [None]
  - Memory impairment [None]

NARRATIVE: CASE EVENT DATE: 20181023
